FAERS Safety Report 17478212 (Version 2)
Quarter: 2020Q1

REPORT INFORMATION
  Report Type: Report from Study
  Country: ES (occurrence: ES)
  Receive Date: 20200229
  Receipt Date: 20200320
  Transmission Date: 20200409
  Serious: Yes (Hospitalization)
  Sender: FDA-Public Use
  Company Number: ES-ACCORD-173794

PATIENT
  Age: 97 Year
  Sex: Female

DRUGS (6)
  1. AMLODIPINE [Concomitant]
     Active Substance: AMLODIPINE BESYLATE
     Route: 048
     Dates: start: 20110713
  2. HYDROCHLOROTHIAZIDE. [Suspect]
     Active Substance: HYDROCHLOROTHIAZIDE
     Dosage: SUICIDE ATTEMPT
     Route: 048
     Dates: start: 20190825, end: 20190825
  3. SERTRALINE [Interacting]
     Active Substance: SERTRALINE HYDROCHLORIDE
     Dosage: SUICIDE ATTEMPT
     Route: 048
     Dates: start: 20190825, end: 20190825
  4. SERC (BETAHISTINE HYDROCHLORIDE) [Interacting]
     Active Substance: BETAHISTINE HYDROCHLORIDE
     Dosage: STRENGTH: 16 MG TABLETS, 30 TABLETS, SUICIDE ATTEMPT
     Route: 048
     Dates: start: 20190825, end: 20190825
  5. HYDROCHLOROTHIAZIDE. [Concomitant]
     Active Substance: HYDROCHLOROTHIAZIDE
     Route: 048
     Dates: start: 20190613
  6. PARACETAMOL [Concomitant]
     Active Substance: ACETAMINOPHEN
     Route: 048
     Dates: end: 20190825

REACTIONS (8)
  - Oxygen saturation decreased [Recovered/Resolved]
  - Hypotension [Recovered/Resolved]
  - Alcohol interaction [Recovered/Resolved]
  - Depressed level of consciousness [Recovered/Resolved]
  - Hypokalaemia [Recovered/Resolved]
  - Intentional overdose [Unknown]
  - Suicide attempt [Unknown]
  - Drug interaction [Unknown]

NARRATIVE: CASE EVENT DATE: 20190825
